FAERS Safety Report 8320465-2 (Version None)
Quarter: 2012Q2

REPORT INFORMATION
  Report Type: 
  Country: None (occurrence: None)
  Receive Date: 20120426
  Receipt Date: 20120426
  Transmission Date: 20120825
  Serious: Yes (Other)
  Sender: FDA-Public Use
  Company Number: None

PATIENT
  Age: 80 Year
  Sex: Male
  Weight: 77.1115 kg

DRUGS (3)
  1. ADVAIR DISKUS 250/50 [Suspect]
     Indication: PNEUMONIA
     Dosage: INHALE 2 DAILY
     Route: 055
     Dates: start: 20120331
  2. ADVAIR DISKUS 250/50 [Suspect]
     Indication: PNEUMONIA
     Dosage: INHALE 2 DAILY
     Route: 055
     Dates: start: 20120329
  3. ADVAIR DISKUS 250/50 [Suspect]
     Indication: PNEUMONIA
     Dosage: INHALE 2 DAILY
     Route: 055
     Dates: start: 20120330

REACTIONS (5)
  - DYSPHAGIA [None]
  - DYSPHONIA [None]
  - PRURITUS [None]
  - APHONIA [None]
  - OROPHARYNGEAL PAIN [None]
